FAERS Safety Report 20843487 (Version 1)
Quarter: 2022Q2

REPORT INFORMATION
  Report Type: Spontaneous
  Country: JP (occurrence: JP)
  Receive Date: 20220518
  Receipt Date: 20220518
  Transmission Date: 20220721
  Serious: Yes (Hospitalization, Other)
  Sender: FDA-Public Use
  Company Number: JP-Eisai-202112148_LEN_P_1

PATIENT
  Age: 73 Year
  Sex: Female

DRUGS (24)
  1. LENVIMA [Suspect]
     Active Substance: LENVATINIB
     Indication: Thyroid cancer
     Route: 048
  2. LENVIMA [Suspect]
     Active Substance: LENVATINIB
     Dosage: UNKNOWN REDUCED DOSE AND FREQUENCY DOSE
     Route: 048
  3. LENVIMA [Suspect]
     Active Substance: LENVATINIB
     Route: 048
     Dates: start: 20170704, end: 20170711
  4. LENVIMA [Suspect]
     Active Substance: LENVATINIB
     Route: 048
     Dates: start: 20170714, end: 20180406
  5. LENVIMA [Suspect]
     Active Substance: LENVATINIB
     Route: 048
     Dates: start: 20180501, end: 201805
  6. LENVIMA [Suspect]
     Active Substance: LENVATINIB
     Route: 048
     Dates: start: 20180619, end: 20181001
  7. LENVIMA [Suspect]
     Active Substance: LENVATINIB
     Route: 048
     Dates: start: 20181002, end: 20190209
  8. LENVIMA [Suspect]
     Active Substance: LENVATINIB
     Route: 048
     Dates: start: 20190308, end: 20190514
  9. LENVIMA [Suspect]
     Active Substance: LENVATINIB
     Route: 048
     Dates: start: 20190521, end: 20210114
  10. LENVIMA [Suspect]
     Active Substance: LENVATINIB
     Dosage: 5 DAYS ON/2 DAYS OFF
     Route: 048
     Dates: start: 20210115, end: 20210301
  11. LENVIMA [Suspect]
     Active Substance: LENVATINIB
     Dosage: 5 DAYS ON/2 DAYS OFF
     Route: 048
     Dates: start: 20210302, end: 20210426
  12. LENVIMA [Suspect]
     Active Substance: LENVATINIB
     Route: 048
     Dates: start: 20210427, end: 20210510
  13. LENVIMA [Suspect]
     Active Substance: LENVATINIB
     Route: 048
     Dates: start: 20210511, end: 20210831
  14. LENVIMA [Suspect]
     Active Substance: LENVATINIB
     Dosage: 5 DAYS ON/2 DAYS OFF
     Route: 048
     Dates: start: 20210907, end: 20220125
  15. LENVIMA [Suspect]
     Active Substance: LENVATINIB
     Dosage: 5 DAYS ON/2 DAYS OFF
     Route: 048
     Dates: start: 20220208, end: 20220222
  16. LENVIMA [Suspect]
     Active Substance: LENVATINIB
     Dosage: 5 DAYS ON/2 DAYS OFF
     Route: 048
     Dates: start: 20220405
  17. NIFEDIPINE [Concomitant]
     Active Substance: NIFEDIPINE
     Indication: Renal impairment
     Dosage: DOSE AND FREQUENCY UNKNOWN
     Route: 065
  18. OLMESARTAN MEDOXOMIL [Concomitant]
     Active Substance: OLMESARTAN MEDOXOMIL
     Indication: Product used for unknown indication
     Dosage: DOSE AND FREQUENCY UNKNOWN
     Route: 048
  19. AZELNIDIPINE [Concomitant]
     Active Substance: AZELNIDIPINE
     Indication: Product used for unknown indication
     Dosage: DOSE AND FREQUENCY UNKNOWN
     Route: 048
     Dates: end: 20170711
  20. SUCRALFATE [Concomitant]
     Active Substance: SUCRALFATE
     Indication: Abdominal pain upper
     Dosage: GRANULATED POWDER, DOSE AND FREQUENCY UNKNOWN
     Route: 048
  21. LEVOTHYROXINE [Concomitant]
     Active Substance: LEVOTHYROXINE
     Indication: Product used for unknown indication
     Route: 065
     Dates: start: 20170714
  22. TRICHLORMETHIAZIDE [Concomitant]
     Active Substance: TRICHLORMETHIAZIDE
     Indication: Blood pressure increased
     Route: 065
     Dates: start: 20180724
  23. ELIQUIS [Concomitant]
     Active Substance: APIXABAN
     Indication: Embolism venous
     Route: 048
     Dates: start: 20210525
  24. NIFEDIPINE [Concomitant]
     Active Substance: NIFEDIPINE
     Indication: Product used for unknown indication
     Dosage: DOSE AND FREQUENCY UNKNOWN
     Route: 065
     Dates: start: 20170711

REACTIONS (10)
  - Cholelithiasis [Unknown]
  - Osteonecrosis of jaw [Unknown]
  - Proteinuria [Recovered/Resolved]
  - Renal impairment [Recovered/Resolved]
  - Abdominal pain upper [Unknown]
  - Blood pressure increased [Recovered/Resolved]
  - Gastric ulcer [Unknown]
  - Blood uric acid increased [Unknown]
  - Embolism venous [Unknown]
  - Pyrexia [Unknown]

NARRATIVE: CASE EVENT DATE: 20170711
